FAERS Safety Report 12986091 (Version 1)
Quarter: 2016Q4

REPORT INFORMATION
  Report Type: Spontaneous
  Country: IT (occurrence: IT)
  Receive Date: 20161130
  Receipt Date: 20161130
  Transmission Date: 20170207
  Serious: Yes (Hospitalization, Other)
  Sender: FDA-Public Use
  Company Number: IT-009507513-1611ITA012807

PATIENT
  Age: 45 Year
  Sex: Male

DRUGS (6)
  1. LORTAAN 12,5 MG COMPRESSE RIVESTITE CON FILM [Suspect]
     Active Substance: LOSARTAN POTASSIUM
     Indication: HYPERTENSION
     Dosage: 28 DOSE UNIT, TOTAL, ORAL
     Route: 048
     Dates: start: 20161020, end: 20161020
  2. LEVOXACIN [Suspect]
     Active Substance: LEVOFLOXACIN
     Indication: BACTERIAL INFECTION
     Dosage: 5 DOSE UNIT, TOTAL, ORAL
     Route: 048
     Dates: start: 20161020, end: 20161020
  3. ESCITALOPRAM OXALATE. [Suspect]
     Active Substance: ESCITALOPRAM OXALATE
     Indication: DEPRESSION
     Dosage: 30 ML, TOTAL, ORAL DROPS
     Route: 048
     Dates: start: 20161020, end: 20161020
  4. ANAFRANIL [Suspect]
     Active Substance: CLOMIPRAMINE HYDROCHLORIDE
     Indication: DEPRESSION
     Dosage: 20 DOSE UNIT, TOTAL ORAL
     Route: 048
     Dates: start: 20161020, end: 20161020
  5. BENTELAN [Suspect]
     Active Substance: BETAMETHASONE SODIUM PHOSPHATE
     Indication: INFLAMMATION
     Dosage: 10 MG TOTAL
     Route: 048
     Dates: start: 20161020, end: 20161020
  6. ZOLPIDEM TARTRATE. [Suspect]
     Active Substance: ZOLPIDEM TARTRATE
     Indication: ANXIETY
     Dosage: 30 ML, TOTAL, ORAL DROPS
     Route: 048
     Dates: start: 20161020, end: 20161020

REACTIONS (3)
  - Sopor [Recovered/Resolved]
  - Intentional self-injury [Recovered/Resolved]
  - Intentional product misuse [Recovered/Resolved]

NARRATIVE: CASE EVENT DATE: 20161020
